FAERS Safety Report 24717197 (Version 1)
Quarter: 2024Q4

REPORT INFORMATION
  Report Type: Spontaneous
  Country: US (occurrence: None)
  Receive Date: 20241209
  Receipt Date: 20241209
  Transmission Date: 20250115
  Serious: Yes (Life-Threatening, Hospitalization, Disabling, Other)
  Sender: Public
  Company Number: None

PATIENT
  Age: 49 Year
  Sex: Female
  Weight: 62.1 kg

DRUGS (9)
  1. LEXAPRO [Suspect]
     Active Substance: ESCITALOPRAM OXALATE
     Indication: Post-traumatic stress disorder
     Dosage: OTHER ROUTE : ORAL;?
     Route: 050
     Dates: start: 20240506, end: 20240810
  2. LEXAPRO [Suspect]
     Active Substance: ESCITALOPRAM OXALATE
     Indication: Weight decreased
  3. potassium 20 MEQ [Concomitant]
  4. ZOLOFT [Concomitant]
     Active Substance: SERTRALINE HYDROCHLORIDE
  5. vitamins D, [Concomitant]
  6. B12 [Concomitant]
  7. Excedrin, [Concomitant]
  8. IBUPROFEN [Concomitant]
     Active Substance: IBUPROFEN
  9. PHENTERMINE [Suspect]
     Active Substance: PHENTERMINE\PHENTERMINE HYDROCHLORIDE

REACTIONS (20)
  - Tachyphrenia [None]
  - Memory impairment [None]
  - Palpitations [None]
  - Rash [None]
  - Blister [None]
  - Nail disorder [None]
  - Skin discolouration [None]
  - Hypokalaemia [None]
  - Decreased activity [None]
  - Speech disorder [None]
  - Visual impairment [None]
  - Tremor [None]
  - Muscle spasms [None]
  - Heart rate increased [None]
  - Constipation [None]
  - Abdominal pain upper [None]
  - Nausea [None]
  - Vomiting [None]
  - Quality of life decreased [None]
  - Weight decreased [None]

NARRATIVE: CASE EVENT DATE: 20240506
